FAERS Safety Report 10342793 (Version 1)
Quarter: 2014Q3

REPORT INFORMATION
  Report Type: Spontaneous
  Country: FR (occurrence: FR)
  Receive Date: 20140725
  Receipt Date: 20140725
  Transmission Date: 20150326
  Serious: Yes (Life-Threatening, Hospitalization)
  Sender: FDA-Public Use
  Company Number: FR-ASTRAZENECA-2014SE53065

PATIENT
  Age: 38 Year
  Sex: Female

DRUGS (6)
  1. ESMERON [Concomitant]
     Active Substance: ROCURONIUM BROMIDE
     Indication: INDUCTION OF ANAESTHESIA
     Route: 042
     Dates: start: 20140516, end: 20140516
  2. STELARA [Concomitant]
     Active Substance: USTEKINUMAB
     Indication: PSORIASIS
  3. BRIDION [Suspect]
     Active Substance: SUGAMMADEX
     Dosage: 100 MG/ML, 1G ONCE/SINGLE ADMINISTRATION
     Route: 042
     Dates: start: 20140516, end: 20140516
  4. DIPRIVAN [Suspect]
     Active Substance: PROPOFOL
     Indication: INDUCTION OF ANAESTHESIA
     Dosage: UNSPECIFIED DOSE AT 08:40 AND 100 MG AT THE END OF PROCEDURE
     Route: 042
     Dates: start: 20140516, end: 20140516
  5. SUFENTA [Concomitant]
     Active Substance: SUFENTANIL CITRATE
     Indication: INDUCTION OF ANAESTHESIA
     Route: 042
     Dates: start: 20140516, end: 20140516
  6. SEVORANE [Concomitant]
     Active Substance: SEVOFLURANE
     Indication: INDUCTION OF ANAESTHESIA
     Route: 055
     Dates: start: 20140516, end: 20140516

REACTIONS (1)
  - Shock [Recovered/Resolved]

NARRATIVE: CASE EVENT DATE: 20140516
